FAERS Safety Report 6023296-1 (Version None)
Quarter: 2008Q4

REPORT INFORMATION
  Report Type: 
  Country: None (occurrence: None)
  Receive Date: 20081226
  Receipt Date: 20081226
  Transmission Date: 20090506
  Serious: Yes (Hospitalization)
  Sender: FDA-Public Use
  Company Number: None

PATIENT
  Sex: Male
  Weight: 135 kg

DRUGS (1)
  1. TAXOL [Suspect]
     Dosage: 130 MG
     Dates: end: 20081222

REACTIONS (4)
  - ABNORMAL BEHAVIOUR [None]
  - BIPOLAR DISORDER [None]
  - MANIA [None]
  - PERSONALITY DISORDER [None]
